FAERS Safety Report 15880815 (Version 1)
Quarter: 2019Q1

REPORT INFORMATION
  Report Type: Spontaneous
  Country: FR (occurrence: FR)
  Receive Date: 20190128
  Receipt Date: 20190128
  Transmission Date: 20190417
  Serious: Yes (Other)
  Sender: FDA-Public Use
  Company Number: FR-JNJFOC-20190127322

PATIENT
  Sex: Male

DRUGS (1)
  1. IMBRUVICA [Suspect]
     Active Substance: IBRUTINIB
     Indication: CHRONIC LYMPHOCYTIC LEUKAEMIA
     Route: 048

REACTIONS (6)
  - Incorrect dose administered [Unknown]
  - Blindness unilateral [Unknown]
  - Macular oedema [Unknown]
  - Ankle operation [Unknown]
  - Retinal haemorrhage [Unknown]
  - Off label use [Unknown]
